FAERS Safety Report 7639469-8 (Version None)
Quarter: 2011Q3

REPORT INFORMATION
  Report Type: 
  Country: None (occurrence: None)
  Receive Date: 20110727
  Receipt Date: 20110720
  Transmission Date: 20111222
  Serious: Yes (Hospitalization, Other)
  Sender: FDA-Public Use
  Company Number: US-GLAXOSMITHKLINE-A0937486A

PATIENT
  Sex: Female

DRUGS (11)
  1. AMITRIPTYLINE HCL [Concomitant]
  2. PRILOSEC [Concomitant]
  3. DIAZIDE [Concomitant]
  4. ZETIA [Concomitant]
  5. LISINOPRIL [Concomitant]
  6. VOTRIENT [Suspect]
     Indication: RENAL CELL CARCINOMA
     Dosage: 800MG PER DAY
     Route: 048
     Dates: start: 20101201, end: 20110117
  7. LOSARTAN POTASSIUM [Concomitant]
  8. SYNTHROID [Concomitant]
  9. NORVASC [Concomitant]
  10. EXELON [Concomitant]
  11. NAMENDA [Concomitant]

REACTIONS (1)
  - EMBOLISM [None]
